FAERS Safety Report 4405620-6 (Version None)
Quarter: 2004Q3

REPORT INFORMATION
  Report Type: 
  Country: None (occurrence: None)
  Receive Date: 20040723
  Receipt Date: 20031021
  Transmission Date: 20050211
  Serious: No
  Sender: FDA-Public Use
  Company Number: US-GLAXOSMITHKLINE-A0430975A

PATIENT
  Sex: Male

DRUGS (8)
  1. AVANDIA [Suspect]
     Dosage: 8MG TWICE PER DAY
     Route: 048
  2. FLOMAX [Suspect]
  3. GLUCOPHAGE XR [Concomitant]
     Dosage: 500MG PER DAY
  4. AMARYL [Concomitant]
     Dosage: 4MG TWICE PER DAY
  5. TENORMIN [Concomitant]
     Dosage: 50MG TWICE PER DAY
  6. COVERA-HS [Concomitant]
     Dosage: 240MG TWICE PER DAY
  7. FUROSEMIDE [Concomitant]
     Dosage: 40MG PER DAY
  8. ALTACE [Concomitant]
     Dosage: 10MG PER DAY

REACTIONS (1)
  - BLOOD GLUCOSE INCREASED [None]
